FAERS Safety Report 11735070 (Version 1)
Quarter: 2015Q4

REPORT INFORMATION
  Report Type: Spontaneous
  Country: FR (occurrence: FR)
  Receive Date: 20151113
  Receipt Date: 20151113
  Transmission Date: 20160304
  Serious: Yes (Life-Threatening)
  Sender: FDA-Public Use
  Company Number: FR-TEVA-607523ISR

PATIENT
  Sex: Female

DRUGS (3)
  1. ENBREL [Concomitant]
     Active Substance: ETANERCEPT
     Indication: RHEUMATOID ARTHRITIS
     Route: 065
     Dates: start: 20131025
  2. ESTREVA [Suspect]
     Active Substance: ESTRADIOL
     Indication: MENOPAUSE
     Route: 048
     Dates: end: 201507
  3. UTROGESTAN [Suspect]
     Active Substance: PROGESTERONE
     Indication: MENOPAUSE
     Route: 065

REACTIONS (2)
  - Thyroid adenoma [Unknown]
  - Breast cancer [Unknown]

NARRATIVE: CASE EVENT DATE: 2015
